FAERS Safety Report 9254783 (Version 2)
Quarter: 2013Q4

REPORT INFORMATION
  Report Type: Spontaneous
  Country: TR (occurrence: TR)
  Receive Date: 20130425
  Receipt Date: 20131101
  Transmission Date: 20140711
  Serious: Yes (Other)
  Sender: FDA-Public Use
  Company Number: TR-AMGEN-TURSP2013008127

PATIENT
  Age: 49 Year
  Sex: Female
  Weight: 79 kg

DRUGS (5)
  1. ENBREL [Suspect]
     Indication: ANKYLOSING SPONDYLITIS
     Dosage: 50 MG, WEEKLY
     Route: 058
     Dates: start: 20120124, end: 20130411
  2. ENBREL [Suspect]
     Dosage: 50 MG, QWK
     Route: 058
  3. ENDOL                              /00003801/ [Concomitant]
     Dosage: UNK, DAILY
     Route: 054
     Dates: start: 201303
  4. ACUPAN [Concomitant]
     Dosage: UNK UNK, QD
     Route: 048
     Dates: start: 2011
  5. ADALAT [Concomitant]
     Dosage: 30 MG, 2X/DAY
     Route: 048
     Dates: start: 2011

REACTIONS (6)
  - Pain [Not Recovered/Not Resolved]
  - Urinary tract infection [Not Recovered/Not Resolved]
  - Influenza [Recovered/Resolved]
  - Nasopharyngitis [Not Recovered/Not Resolved]
  - Injection site pain [Recovered/Resolved]
  - Injection site haemorrhage [Recovered/Resolved]
